FAERS Safety Report 6648405-2 (Version None)
Quarter: 2010Q1

REPORT INFORMATION
  Report Type: 
  Country: None (occurrence: None)
  Receive Date: 20100319
  Receipt Date: 20100308
  Transmission Date: 20100710
  Serious: No
  Sender: FDA-Public Use
  Company Number: B0640305A

PATIENT
  Age: 34 Year
  Sex: Male

DRUGS (3)
  1. ACYCLOVIR [Suspect]
     Indication: GENITAL HERPES
     Dosage: ORAL
     Route: 048
  2. ACYCLOVIR [Suspect]
     Indication: GENITAL HERPES
     Dosage: INTRAVENOUS
     Route: 042
  3. VANCOMYCIN HYDROCHLORIDE [Concomitant]

REACTIONS (4)
  - DRUG RESISTANCE [None]
  - EXCESSIVE GRANULATION TISSUE [None]
  - NASAL CAVITY MASS [None]
  - NASAL ULCER [None]
